FAERS Safety Report 19097128 (Version 1)
Quarter: 2021Q2

REPORT INFORMATION
  Report Type: Spontaneous
  Country: US (occurrence: US)
  Receive Date: 20210406
  Receipt Date: 20210406
  Transmission Date: 20210717
  Serious: Yes (Hospitalization)
  Sender: FDA-Public Use
  Company Number: None

PATIENT
  Age: 73 Year
  Sex: Male
  Weight: 48.56 kg

DRUGS (1)
  1. ENOXAPARIN (ENOXAPARIN 120MG/0.8ML INJ, SYRINGE, 0.8ML) [Suspect]
     Active Substance: ENOXAPARIN
     Indication: ATRIAL FIBRILLATION
     Route: 058
     Dates: start: 20201124, end: 20210122

REACTIONS (2)
  - Haemorrhage [None]
  - Arterial thrombosis [None]

NARRATIVE: CASE EVENT DATE: 20210125
